FAERS Safety Report 24200175 (Version 2)
Quarter: 2024Q3

REPORT INFORMATION
  Report Type: Spontaneous
  Country: US (occurrence: US)
  Receive Date: 20240812
  Receipt Date: 20240815
  Transmission Date: 20241017
  Serious: Yes (Life-Threatening, Hospitalization, Other)
  Sender: PFIZER
  Company Number: US-PFIZER INC-PV202400102000

PATIENT
  Age: 51 Year
  Sex: Female

DRUGS (8)
  1. LORAZEPAM [Suspect]
     Active Substance: LORAZEPAM
     Indication: Malignant catatonia
     Dosage: 1 MG (TRIAL DOSE)
     Route: 030
  2. LORAZEPAM [Suspect]
     Active Substance: LORAZEPAM
     Dosage: 1.5 MG (HD 2)
     Route: 030
  3. LORAZEPAM [Suspect]
     Active Substance: LORAZEPAM
     Dosage: 6 MG, DAILY
     Route: 030
  4. LORAZEPAM [Suspect]
     Active Substance: LORAZEPAM
     Dosage: 1 MG (HD 11)
     Route: 030
  5. VANCOMYCIN [Concomitant]
     Active Substance: VANCOMYCIN
     Indication: Staphylococcal bacteraemia
     Dosage: UNK
     Route: 042
  6. QUETIAPINE [Concomitant]
     Active Substance: QUETIAPINE
     Indication: Confusional state
     Dosage: 50 MG, 2X/DAY
     Route: 048
  7. QUETIAPINE [Concomitant]
     Active Substance: QUETIAPINE
     Indication: Agitation
     Dosage: 100 MG (HD2)
     Route: 048
  8. QUETIAPINE [Concomitant]
     Active Substance: QUETIAPINE
     Indication: Hallucination

REACTIONS (4)
  - Drug intolerance [Unknown]
  - Respiratory depression [Unknown]
  - Off label use [Unknown]
  - Drug ineffective for unapproved indication [Unknown]
